FAERS Safety Report 9168767 (Version 1)
Quarter: 2013Q1

REPORT INFORMATION
  Report Type: Spontaneous
  Country: BR (occurrence: BR)
  Receive Date: 20130318
  Receipt Date: 20130318
  Transmission Date: 20140127
  Serious: Yes (Death, Hospitalization, Other)
  Sender: FDA-Public Use
  Company Number: BR-AMGEN-BRASP2013018328

PATIENT
  Age: 55 Year
  Sex: Male
  Weight: 76 kg

DRUGS (3)
  1. ENBREL [Suspect]
     Indication: RHEUMATOID ARTHRITIS
     Dosage: 50 MG, ONCE WEEKLY
     Route: 058
     Dates: start: 201209
  2. ENALAPRIL [Concomitant]
     Indication: RHEUMATOID ARTHRITIS
     Dosage: STRENGTH 20MG
  3. CORTICOSTEROID NOS [Concomitant]
     Indication: RHEUMATOID ARTHRITIS
     Dosage: STRENGTH 15MG

REACTIONS (4)
  - Death [Fatal]
  - Diverticulitis [Unknown]
  - Hypovolaemic shock [Unknown]
  - Infection [Unknown]
